FAERS Safety Report 8934396 (Version 19)
Quarter: 2015Q4

REPORT INFORMATION
  Report Type: Report from Study
  Country: CA (occurrence: CA)
  Receive Date: 20121129
  Receipt Date: 20151008
  Transmission Date: 20160305
  Serious: Yes (Hospitalization)
  Sender: FDA-Public Use
  Company Number: CA-ROCHE-1066192

PATIENT
  Age: 54 Year
  Sex: Female
  Weight: 108 kg

DRUGS (14)
  1. ACTEMRA [Suspect]
     Active Substance: TOCILIZUMAB
     Route: 042
     Dates: start: 20140729
  2. FOLIC ACID. [Concomitant]
     Active Substance: FOLIC ACID
  3. CELEBREX [Concomitant]
     Active Substance: CELECOXIB
  4. FERROUS FUMARATE [Concomitant]
     Active Substance: FERROUS FUMARATE
  5. PLAQUENIL [Concomitant]
     Active Substance: HYDROXYCHLOROQUINE SULFATE
  6. RAMIPRIL. [Concomitant]
     Active Substance: RAMIPRIL
  7. ACTEMRA [Suspect]
     Active Substance: TOCILIZUMAB
     Route: 042
     Dates: start: 20121219
  8. HYDROCHLOROTHIAZIDE. [Concomitant]
     Active Substance: HYDROCHLOROTHIAZIDE
  9. ASPIRIN. [Concomitant]
     Active Substance: ASPIRIN
  10. ACTEMRA [Suspect]
     Active Substance: TOCILIZUMAB
     Indication: RHEUMATOID ARTHRITIS
     Route: 042
     Dates: start: 20111116
  11. VITAMIN B12 [Concomitant]
     Active Substance: CYANOCOBALAMIN
  12. METHOTREXATE [Concomitant]
     Active Substance: METHOTREXATE
  13. ATORVASTATIN [Concomitant]
     Active Substance: ATORVASTATIN
  14. METFORMIN [Concomitant]
     Active Substance: METFORMIN HYDROCHLORIDE
     Route: 065

REACTIONS (16)
  - Erythema [Recovered/Resolved]
  - Respiratory rate increased [Unknown]
  - Back pain [Recovered/Resolved]
  - Malaise [Unknown]
  - Hypotension [Unknown]
  - Hypotension [Unknown]
  - Skin irritation [Recovered/Resolved]
  - Nausea [Recovering/Resolving]
  - Infusion related reaction [Unknown]
  - Nasopharyngitis [Unknown]
  - Hyperglycaemia [Unknown]
  - Erythema [Unknown]
  - Nasopharyngitis [Recovered/Resolved]
  - Blood pressure diastolic decreased [Unknown]
  - Peripheral swelling [Unknown]
  - Poor venous access [Unknown]

NARRATIVE: CASE EVENT DATE: 20120430
